FAERS Safety Report 22151828 (Version 1)
Quarter: 2023Q1

REPORT INFORMATION
  Report Type: Spontaneous
  Country: US (occurrence: None)
  Receive Date: 20230329
  Receipt Date: 20230329
  Transmission Date: 20230417
  Serious: Yes (Death)
  Sender: FDA-Public Use
  Company Number: None

PATIENT
  Age: 68 Year
  Sex: Female
  Weight: 65 kg

DRUGS (1)
  1. APIXABAN [Suspect]
     Active Substance: APIXABAN
     Dates: start: 20230323, end: 20230327

REACTIONS (7)
  - Sepsis [None]
  - Deep vein thrombosis [None]
  - Ischaemia [None]
  - Gastrointestinal haemorrhage [None]
  - Haemoglobin decreased [None]
  - Unresponsive to stimuli [None]
  - Shock haemorrhagic [None]

NARRATIVE: CASE EVENT DATE: 20230323
